FAERS Safety Report 24760788 (Version 1)
Quarter: 2024Q4

REPORT INFORMATION
  Report Type: Report from Study
  Country: US (occurrence: US)
  Receive Date: 20241220
  Receipt Date: 20241220
  Transmission Date: 20250115
  Serious: Yes (Hospitalization)
  Sender: EISAI
  Company Number: US-Eisai-EC-2024-174665

PATIENT
  Age: 71 Year
  Sex: Male
  Weight: 58 kg

DRUGS (2)
  1. ERIBULIN [Suspect]
     Active Substance: ERIBULIN
     Indication: Transitional cell carcinoma urethra
     Route: 042
     Dates: start: 20240806, end: 20241119
  2. GEMCITABINE [Suspect]
     Active Substance: GEMCITABINE
     Indication: Transitional cell carcinoma urethra
     Route: 042
     Dates: start: 20240806, end: 20241119

REACTIONS (2)
  - Anaemia [Recovered/Resolved]
  - Myocardial infarction [Recovered/Resolved]

NARRATIVE: CASE EVENT DATE: 20241201
